FAERS Safety Report 9383416 (Version 1)
Quarter: 2013Q3

REPORT INFORMATION
  Report Type: Spontaneous
  Country: FR (occurrence: FR)
  Receive Date: 20130704
  Receipt Date: 20130704
  Transmission Date: 20140515
  Serious: Yes (Hospitalization)
  Sender: FDA-Public Use
  Company Number: FR-JNJFOC-20130618413

PATIENT
  Age: 87 Year
  Sex: Male
  Weight: 84 kg

DRUGS (13)
  1. XARELTO [Suspect]
     Indication: CEREBROVASCULAR ACCIDENT PROPHYLAXIS
     Route: 048
     Dates: start: 20130429, end: 20130527
  2. XARELTO [Suspect]
     Indication: ATRIAL TACHYCARDIA
     Route: 048
     Dates: start: 20130429, end: 20130527
  3. KARDEGIC [Suspect]
     Indication: MYOCARDIAL ISCHAEMIA
     Route: 048
     Dates: start: 20130417, end: 20130530
  4. CARDENSIEL [Concomitant]
     Route: 065
  5. CRESTOR [Concomitant]
     Route: 065
  6. CITALOPRAM HYDROBROMIDE [Concomitant]
     Route: 065
  7. IMOVANE [Concomitant]
     Route: 065
  8. INSULIN [Concomitant]
     Route: 065
  9. METFORMIN [Concomitant]
     Route: 065
     Dates: start: 20130429, end: 20130527
  10. XANAX [Concomitant]
     Route: 065
     Dates: start: 20130524, end: 20130527
  11. DAFALGAN [Concomitant]
     Route: 065
     Dates: start: 20130417, end: 20130527
  12. AUGMENTIN [Concomitant]
     Route: 065
  13. OFLOCET [Concomitant]
     Route: 065
     Dates: start: 20130508

REACTIONS (1)
  - Anaemia [Recovering/Resolving]
